FAERS Safety Report 11995665 (Version 2)
Quarter: 2016Q1

REPORT INFORMATION
  Report Type: Spontaneous
  Country: FR (occurrence: FR)
  Receive Date: 20160203
  Receipt Date: 20160225
  Transmission Date: 20160526
  Serious: Yes (Hospitalization)
  Sender: FDA-Public Use
  Company Number: FR-ROCHE-1702893

PATIENT
  Age: 69 Year
  Sex: Female

DRUGS (13)
  1. DAFALGAN [Concomitant]
     Active Substance: ACETAMINOPHEN
  2. HERCEPTIN [Suspect]
     Active Substance: TRASTUZUMAB
     Indication: BREAST CANCER METASTATIC
     Route: 042
     Dates: start: 20151222, end: 20151222
  3. KARDEGIC [Concomitant]
     Active Substance: ASPIRIN LYSINE
  4. PACLITAXEL HOSPIRA [Suspect]
     Active Substance: PACLITAXEL
     Indication: BREAST CANCER METASTATIC
     Route: 042
     Dates: start: 20151222, end: 20160105
  5. SOLU-MEDROL [Concomitant]
     Active Substance: METHYLPREDNISOLONE SODIUM SUCCINATE
  6. LASILIX [Concomitant]
     Active Substance: FUROSEMIDE
  7. SOMATULINE AUTOGEL [Concomitant]
     Active Substance: LANREOTIDE ACETATE
  8. PERJETA [Suspect]
     Active Substance: PERTUZUMAB
     Indication: BREAST CANCER METASTATIC
     Route: 042
     Dates: start: 20151222, end: 20151222
  9. PRIMPERAN [Concomitant]
     Active Substance: METOCLOPRAMIDE HYDROCHLORIDE
  10. INEXIUM [Concomitant]
     Active Substance: ESOMEPRAZOLE
  11. ACUPAN [Concomitant]
     Active Substance: NEFOPAM HYDROCHLORIDE
  12. SPASFON (FRANCE) [Concomitant]
     Active Substance: PHLOROGLUCINOL
  13. CALCIPARINE [Concomitant]
     Active Substance: HEPARIN CALCIUM

REACTIONS (1)
  - Pneumocystis jirovecii pneumonia [Recovered/Resolved]

NARRATIVE: CASE EVENT DATE: 20160109
